FAERS Safety Report 15487884 (Version 4)
Quarter: 2020Q2

REPORT INFORMATION
  Report Type: Spontaneous
  Country: US (occurrence: US)
  Receive Date: 20181011
  Receipt Date: 20200421
  Transmission Date: 20200713
  Serious: Yes (Hospitalization, Other)
  Sender: FDA-Public Use
  Company Number: US-SA-2018SA277601

PATIENT
  Age: 38 Year
  Sex: Male
  Weight: 68 kg

DRUGS (1)
  1. LUMIZYME [Suspect]
     Active Substance: ALGLUCOSIDASE ALFA
     Indication: GLYCOGEN STORAGE DISEASE TYPE II
     Dosage: 21.32 MG/KG, QOW
     Route: 041
     Dates: start: 20170816

REACTIONS (22)
  - Culture urine positive [Unknown]
  - Tachycardia [Unknown]
  - Pleural effusion [Unknown]
  - Nasal congestion [Unknown]
  - Muscular weakness [Unknown]
  - Condition aggravated [Unknown]
  - Pneumonia [Unknown]
  - Pain [Unknown]
  - Tachypnoea [Unknown]
  - Respiratory muscle weakness [Unknown]
  - Product dose omission [Unknown]
  - Sepsis [Unknown]
  - Rhinovirus infection [Unknown]
  - Upper respiratory tract infection [Unknown]
  - Pyrexia [Unknown]
  - Hypoxia [Unknown]
  - Chest X-ray abnormal [Unknown]
  - Procalcitonin increased [Unknown]
  - Dyspnoea [Unknown]
  - Breath sounds abnormal [Unknown]
  - Chronic respiratory failure [Unknown]
  - Muscle disorder [Unknown]

NARRATIVE: CASE EVENT DATE: 201809
